FAERS Safety Report 20484159 (Version 1)
Quarter: 2022Q1

REPORT INFORMATION
  Report Type: Spontaneous
  Country: CN (occurrence: None)
  Receive Date: 20220217
  Receipt Date: 20220217
  Transmission Date: 20220423
  Serious: Yes (Hospitalization)
  Sender: FDA-Public Use
  Company Number: 2022A069928

PATIENT
  Age: 23376 Day
  Sex: Male

DRUGS (2)
  1. TICAGRELOR [Suspect]
     Active Substance: TICAGRELOR
     Indication: Coronary artery disease
     Route: 048
     Dates: start: 20200101, end: 20200408
  2. INDOBUFEN [Suspect]
     Active Substance: INDOBUFEN
     Indication: Coronary artery disease
     Route: 048
     Dates: start: 20200101, end: 20200408

REACTIONS (2)
  - Faeces discoloured [Recovering/Resolving]
  - Anaemia [Unknown]

NARRATIVE: CASE EVENT DATE: 20200406
